FAERS Safety Report 13072246 (Version 1)
Quarter: 2016Q4

REPORT INFORMATION
  Report Type: Report from Study
  Country: US (occurrence: US)
  Receive Date: 20161229
  Receipt Date: 20161229
  Transmission Date: 20170207
  Serious: Yes (Hospitalization)
  Sender: FDA-Public Use
  Company Number: US-ACTELION-A-NJ2016-147487

PATIENT
  Age: 91 Year
  Sex: Female

DRUGS (2)
  1. TRACLEER [Suspect]
     Active Substance: BOSENTAN
     Indication: PULMONARY HYPERTENSION
     Dosage: 62.5 MG, BID
     Route: 048
     Dates: start: 20100812
  2. XARELTO [Concomitant]
     Active Substance: RIVAROXABAN

REACTIONS (5)
  - Dyspnoea [Unknown]
  - Malaise [Unknown]
  - Complication associated with device [Unknown]
  - Muscle strain [Unknown]
  - Cardiac disorder [Unknown]
